FAERS Safety Report 6858071-9 (Version None)
Quarter: 2010Q3

REPORT INFORMATION
  Report Type: 
  Country: None (occurrence: None)
  Receive Date: 20100719
  Receipt Date: 20080326
  Transmission Date: 20110219
  Serious: No
  Sender: FDA-Public Use
  Company Number: US-PFIZER INC-2008010070

PATIENT
  Sex: Female
  Weight: 72.3 kg

DRUGS (7)
  1. CHANTIX [Suspect]
     Indication: SMOKING CESSATION THERAPY
     Route: 048
     Dates: start: 20070926, end: 20071201
  2. LISINOPRIL [Concomitant]
  3. PLAVIX [Concomitant]
  4. METOPROLOL [Concomitant]
  5. ACETYLSALICYLIC ACID [Concomitant]
  6. ALPRAZOLAM [Concomitant]
  7. ZANTAC [Concomitant]

REACTIONS (2)
  - CONSTIPATION [None]
  - GENITAL HERPES [None]
